FAERS Safety Report 7954367-8 (Version None)
Quarter: 2011Q4

REPORT INFORMATION
  Report Type: 
  Country: None (occurrence: None)
  Receive Date: 20111202
  Receipt Date: 20110329
  Transmission Date: 20120403
  Serious: Yes (Hospitalization)
  Sender: FDA-Public Use
  Company Number: US-GENZYME-LEUK-1000073

PATIENT

DRUGS (3)
  1. ANTINEOPLASTIC AGENTS [Suspect]
     Indication: MALIGNANT MELANOMA
     Dosage: 10 MG/KG, DAY 1 OF 21 DAY CYCLE
     Route: 042
     Dates: start: 20110214, end: 20110214
  2. ANTINEOPLASTIC AGENTS [Suspect]
     Dosage: 10 MG/KG, DAY 1 OF 21 DAY CYCLE
     Route: 042
     Dates: start: 20110307, end: 20110307
  3. LEUKINE [Suspect]
     Indication: MALIGNANT MELANOMA
     Dosage: UNK
     Route: 065

REACTIONS (1)
  - PNEUMONIA [None]
